FAERS Safety Report 21643556 (Version 2)
Quarter: 2024Q3

REPORT INFORMATION
  Report Type: Report from Study
  Country: US (occurrence: US)
  Receive Date: 20221125
  Receipt Date: 20240727
  Transmission Date: 20241017
  Serious: Yes (Hospitalization)
  Sender: ABBVIE
  Company Number: US-ABBVIE-22K-163-4414588-00

PATIENT
  Age: 71 Year
  Sex: Female
  Weight: 70.306 kg

DRUGS (29)
  1. RINVOQ [Suspect]
     Active Substance: UPADACITINIB
     Indication: Rheumatoid arthritis
     Dosage: 15 MILLIGRAM
     Route: 048
     Dates: start: 20211115
  2. RINVOQ [Suspect]
     Active Substance: UPADACITINIB
     Indication: Rheumatoid arthritis
     Dosage: 15 MILLIGRAM
     Route: 048
     Dates: start: 20220426
  3. MODERNA COVID-19 VACCINE [Concomitant]
     Active Substance: ELASOMERAN
     Indication: COVID-19 immunisation
     Route: 030
  4. MODERNA COVID-19 VACCINE [Concomitant]
     Active Substance: ELASOMERAN
     Indication: COVID-19 immunisation
     Dosage: ONE IN ONCE
     Route: 030
  5. MODERNA COVID-19 VACCINE [Concomitant]
     Active Substance: ELASOMERAN
     Indication: COVID-19 immunisation
     Dosage: TIME INTERVAL: 1 TOTAL: ONE IN ONCE
     Route: 030
  6. PREDNISONE [Concomitant]
     Active Substance: PREDNISONE
     Indication: Product used for unknown indication
  7. VALACYCLOVIR [Concomitant]
     Active Substance: VALACYCLOVIR HYDROCHLORIDE
     Indication: Product used for unknown indication
  8. MEROPENEM [Concomitant]
     Active Substance: MEROPENEM
     Indication: Product used for unknown indication
     Dates: start: 20240305
  9. OMNIPAQUE [Concomitant]
     Active Substance: IOHEXOL
     Indication: Product used for unknown indication
  10. ROCEPHIN [Concomitant]
     Active Substance: CEFTRIAXONE SODIUM
     Indication: Product used for unknown indication
  11. PLAQUENIL [Suspect]
     Active Substance: HYDROXYCHLOROQUINE SULFATE
     Indication: Abdominal abscess
     Dosage: STRENGTH 200 MG 400 MILLIGRAM ORAL AT BEDTIME
     Route: 048
  12. FOLIC ACID [Concomitant]
     Active Substance: FOLIC ACID
     Indication: Product used for unknown indication
     Route: 048
  13. LOSARTAN [Concomitant]
     Active Substance: LOSARTAN
     Indication: Product used for unknown indication
     Route: 048
  14. PANTOPRAZOLE [Concomitant]
     Active Substance: PANTOPRAZOLE
     Indication: Product used for unknown indication
     Dosage: 40 MILLIGRAM ORAL  BEFORE MEALS QTY = 60
  15. POTASSIUM CHLORIDE [Concomitant]
     Active Substance: POTASSIUM CHLORIDE
     Indication: Product used for unknown indication
     Dosage: 20 MEQ/15 ML LIQUID 10 MILLIEQUIVALENT ORAL DAILY
  16. SUCRALFATE [Concomitant]
     Active Substance: SUCRALFATE
     Indication: Product used for unknown indication
     Dosage: TIME INTERVAL: 0.33333333 DAYS: BEFORE MEALS
     Route: 048
  17. SUCRALFATE [Concomitant]
     Active Substance: SUCRALFATE
     Indication: Product used for unknown indication
     Dosage: AT BEDTIME
     Route: 048
  18. TRAMADOL [Concomitant]
     Active Substance: TRAMADOL\TRAMADOL HYDROCHLORIDE
     Indication: Pain
     Dosage: AS NEEDED FOR PAIN
     Route: 048
  19. OXYCODONE AND ACETAMINOPHEN [Concomitant]
     Active Substance: ACETAMINOPHEN\OXYCODONE HYDROCHLORIDE
     Indication: Pain
     Dosage: 7.5/325 MG (ENDOCET 7.5/325 MG) 1 EACH TAB AS NEEDED
     Route: 048
  20. LOSARTAN POTASSIUM [Concomitant]
     Active Substance: LOSARTAN POTASSIUM
     Indication: Product used for unknown indication
     Route: 048
  21. PANTOPRAZOLE [Concomitant]
     Active Substance: PANTOPRAZOLE
     Indication: Product used for unknown indication
     Route: 048
  22. HYDROMORPHONE HYDROCHLORIDE [Concomitant]
     Active Substance: HYDROMORPHONE HYDROCHLORIDE
     Indication: Product used for unknown indication
     Route: 048
  23. NALOXONE HCL [Concomitant]
     Active Substance: NALOXONE HYDROCHLORIDE
     Indication: Product used for unknown indication
     Dosage: ASDIR PRN
     Route: 042
  24. ENOXAPARIN SODIUM [Concomitant]
     Active Substance: ENOXAPARIN SODIUM
     Indication: Product used for unknown indication
     Route: 058
  25. CEFTRIAXONE SODIUM [Concomitant]
     Active Substance: CEFTRIAXONE SODIUM
     Indication: Product used for unknown indication
     Dosage: 2 GM
     Route: 048
  26. ACETAMINOPHEN [Concomitant]
     Active Substance: ACETAMINOPHEN
     Indication: Product used for unknown indication
     Dosage: PRN
     Route: 048
  27. ONDANSETRON HYDROCHLORIDE [Concomitant]
     Active Substance: ONDANSETRON HYDROCHLORIDE
     Indication: Product used for unknown indication
     Dosage: PRN
  28. SENNA [Concomitant]
     Active Substance: SENNA LEAF\SENNOSIDES\SENNOSIDES A AND B
     Indication: Product used for unknown indication
     Dosage: 2 TABLET
     Route: 048
  29. HYDROXYCHLOROQUINE [Concomitant]
     Active Substance: HYDROXYCHLOROQUINE
     Indication: Product used for unknown indication
     Dosage: BEDTIME
     Route: 048

REACTIONS (66)
  - Normocytic anaemia [Unknown]
  - Herpes zoster [Recovered/Resolved]
  - Pleural effusion [Not Recovered/Not Resolved]
  - Abscess [Unknown]
  - Atelectasis [Unknown]
  - Biliary dilatation [Unknown]
  - Hypokalaemia [Unknown]
  - Rheumatoid arthritis [Unknown]
  - Abdominal pain upper [Not Recovered/Not Resolved]
  - Oedema peripheral [Unknown]
  - Decreased appetite [Unknown]
  - Asthenia [Unknown]
  - Thrombocytosis [Recovering/Resolving]
  - Hypertension [Unknown]
  - Chest pain [Unknown]
  - Erythema [Unknown]
  - Swelling [Unknown]
  - Pain [Unknown]
  - Hypoaesthesia [Unknown]
  - Purulent discharge [Unknown]
  - Wound complication [Unknown]
  - Liver disorder [Unknown]
  - Body temperature increased [Unknown]
  - Abdominal abscess [Unknown]
  - Anaemia [Unknown]
  - Dyspnoea [Unknown]
  - Haemoptysis [Unknown]
  - Haemorrhage [Unknown]
  - Red blood cell abnormality [Unknown]
  - Chronic kidney disease [Unknown]
  - Cardiomegaly [Unknown]
  - Aspiration pleural cavity [Unknown]
  - Inflammation [Unknown]
  - Subdiaphragmatic abscess [Unknown]
  - Dilatation intrahepatic duct acquired [Unknown]
  - Hepatic steatosis [Unknown]
  - Splenic abscess [Unknown]
  - Neutrophil count increased [Unknown]
  - Blood potassium decreased [Unknown]
  - Blood calcium decreased [Unknown]
  - Blood phosphorus decreased [Unknown]
  - Blood albumin decreased [Unknown]
  - Haematocrit decreased [Unknown]
  - Red cell distribution width increased [Unknown]
  - Platelet count increased [Unknown]
  - Blood sodium decreased [Unknown]
  - Blood creatinine decreased [Unknown]
  - Aspartate aminotransferase decreased [Unknown]
  - Blood alkaline phosphatase increased [Unknown]
  - Prothrombin time prolonged [Unknown]
  - Mean platelet volume decreased [Unknown]
  - Lymphocyte count increased [Unknown]
  - Monocyte count increased [Unknown]
  - Eosinophil count decreased [Unknown]
  - Neutrophil count increased [Unknown]
  - Lymphocyte count decreased [Unknown]
  - Blood alkaline phosphatase increased [Unknown]
  - Breath sounds abnormal [Unknown]
  - Pallor [Unknown]
  - Mucosal disorder [Unknown]
  - White blood cell disorder [Unknown]
  - White blood cell analysis abnormal [Unknown]
  - Arteriosclerosis coronary artery [Unknown]
  - Pericardial effusion [Unknown]
  - Cholecystectomy [Unknown]
  - Gastritis [Unknown]

NARRATIVE: CASE EVENT DATE: 20220417
